FAERS Safety Report 22002688 (Version 2)
Quarter: 2023Q1

REPORT INFORMATION
  Report Type: Spontaneous
  Country: CN (occurrence: CN)
  Receive Date: 20230217
  Receipt Date: 20230329
  Transmission Date: 20230418
  Serious: Yes (Other)
  Sender: FDA-Public Use
  Company Number: CN-QILU PHARMACEUTICAL (HAINAN) CO.  LTD.-QLH-000026-2023

PATIENT
  Sex: Female

DRUGS (22)
  1. IMATINIB [Suspect]
     Active Substance: IMATINIB
     Indication: Philadelphia positive acute lymphocytic leukaemia
     Dosage: 0.4 G ONCE A DAY
     Route: 048
     Dates: start: 20211231
  2. IMATINIB [Suspect]
     Active Substance: IMATINIB
     Indication: Philadelphia positive acute lymphocytic leukaemia
  3. LEUCOVORIN [Concomitant]
     Active Substance: LEUCOVORIN
     Route: 065
  4. LEUCOVORIN [Concomitant]
     Active Substance: LEUCOVORIN
  5. VINCRISTINE [Concomitant]
     Active Substance: VINCRISTINE
     Dosage: FIRST CYCLE
     Route: 065
  6. VINCRISTINE [Concomitant]
     Active Substance: VINCRISTINE
     Dosage: PART A OF HYPER-CVAD FOR THE SECOND CYCLE
     Route: 065
  7. DAUNORUBICIN [Concomitant]
     Active Substance: DAUNORUBICIN
     Dosage: FIRST CYCLE
     Route: 065
  8. DAUNORUBICIN [Concomitant]
     Active Substance: DAUNORUBICIN
  9. PREDNISONE [Concomitant]
     Active Substance: PREDNISONE
     Dosage: FIRST CYCLE
     Route: 065
  10. PREDNISONE [Concomitant]
     Active Substance: PREDNISONE
  11. CYCLOPHOSPHAMIDE [Concomitant]
     Active Substance: CYCLOPHOSPHAMIDE
     Dosage: PART A OF HYPER-CVAD REGIMEN FOR THE SECOND CYCLE
     Route: 065
  12. CYCLOPHOSPHAMIDE [Concomitant]
     Active Substance: CYCLOPHOSPHAMIDE
  13. DOXORUBICIN [Concomitant]
     Active Substance: DOXORUBICIN
     Dosage: PART A OF HYPER-CVAD REGIMEN FOR THE SECOND CYCLE
     Route: 065
  14. DOXORUBICIN [Concomitant]
     Active Substance: DOXORUBICIN
  15. DEXAMETHASONE [Concomitant]
     Active Substance: DEXAMETHASONE
     Dosage: PART A OF HYPER-CVAD REGIMEN FOR THE SECOND CYCLE
     Route: 065
  16. DEXAMETHASONE [Concomitant]
     Active Substance: DEXAMETHASONE
  17. METHOTREXATE [Concomitant]
     Active Substance: METHOTREXATE
     Dosage: HIGH DOSE, AS A 24 HOUR CONTINUOUS INFUSION ON DAY 1, PART B OF HYPER-CVAD REGIMEN
     Route: 041
  18. METHOTREXATE [Concomitant]
     Active Substance: METHOTREXATE
  19. CYTARABINE [Concomitant]
     Active Substance: CYTARABINE
     Dosage: ON DAYS 2 AND 3, PART B OF HYPER-CVAD REGIMEN
     Route: 042
  20. CYTARABINE [Concomitant]
     Active Substance: CYTARABINE
  21. SODIUM BICARBONATE [Concomitant]
     Active Substance: SODIUM BICARBONATE
     Route: 065
  22. SODIUM BICARBONATE [Concomitant]
     Active Substance: SODIUM BICARBONATE

REACTIONS (3)
  - Acute kidney injury [Recovered/Resolved]
  - Drug clearance decreased [Recovered/Resolved]
  - Drug interaction [Unknown]
